FAERS Safety Report 5157594-0 (Version None)
Quarter: 2006Q4

REPORT INFORMATION
  Report Type: 
  Country: None (occurrence: None)
  Receive Date: 20061127
  Receipt Date: 20061114
  Transmission Date: 20070319
  Serious: Yes (Hospitalization)
  Sender: FDA-Public Use
  Company Number: NL-ELI_LILLY_AND_COMPANY-NL200611003107

PATIENT
  Sex: Female
  Weight: 3 kg

DRUGS (4)
  1. PROZAC [Suspect]
     Dosage: 20 MG, UNK
     Dates: end: 20051224
  2. KYTRIL [Concomitant]
     Dosage: UNK MG, 2/D
  3. OMEPRAZOLE [Concomitant]
     Dosage: UNK MG, UNK
  4. MAGNESIUM OXIDE [Concomitant]
     Dosage: UNK MG, UNK
     Route: 048

REACTIONS (7)
  - BLOOD PH DECREASED [None]
  - CAESAREAN SECTION [None]
  - DRUG EXPOSURE DURING PREGNANCY [None]
  - FOETAL DISTRESS SYNDROME [None]
  - HYPERGLYCAEMIA [None]
  - MECONIUM IN AMNIOTIC FLUID [None]
  - RESPIRATORY DISORDER [None]
